FAERS Safety Report 23723916 (Version 2)
Quarter: 2024Q2

REPORT INFORMATION
  Report Type: Spontaneous
  Country: GB (occurrence: GB)
  Receive Date: 20240409
  Receipt Date: 20240422
  Transmission Date: 20240715
  Serious: Yes (Disabling, Other)
  Sender: FDA-Public Use
  Company Number: None

PATIENT
  Age: 85 Year
  Sex: Male

DRUGS (3)
  1. GABAPENTIN [Suspect]
     Active Substance: GABAPENTIN
     Indication: Pain
     Dosage: 300 MILLIGRAM, TID (300 MG THREE TTIMES PER DAY - (TOTAL 900 MG PER DAY)
     Route: 065
     Dates: start: 20230902, end: 20230908
  2. AMLODIPINE [Concomitant]
     Active Substance: AMLODIPINE BESYLATE
     Indication: Cerebrovascular accident
     Dosage: UNK
     Route: 065
     Dates: start: 20090303
  3. ATORVASTATIN [Concomitant]
     Active Substance: ATORVASTATIN
     Indication: Cerebrovascular accident
     Dosage: UNK
     Route: 065
     Dates: start: 20090303

REACTIONS (5)
  - Intellectual disability [Not Recovered/Not Resolved]
  - Medication error [Unknown]
  - Memory impairment [Unknown]
  - Impaired reasoning [Unknown]
  - Speech disorder [Unknown]

NARRATIVE: CASE EVENT DATE: 20230908
